FAERS Safety Report 13568382 (Version 2)
Quarter: 2017Q2

REPORT INFORMATION
  Report Type: Spontaneous
  Country: SE (occurrence: SE)
  Receive Date: 20170522
  Receipt Date: 20170529
  Transmission Date: 20170830
  Serious: Yes (Life-Threatening)
  Sender: FDA-Public Use
  Company Number: SE-TEVA-767759ACC

PATIENT
  Age: 57 Year
  Sex: Female
  Weight: 88 kg

DRUGS (11)
  1. ATORVASTATIN ACTAVIS [Suspect]
     Active Substance: ATORVASTATIN
     Dates: start: 20161012, end: 201611
  2. OXIS [Concomitant]
     Active Substance: FORMOTEROL FUMARATE
  3. METOPROLOL. [Concomitant]
     Active Substance: METOPROLOL
  4. NITROLINGUAL [Concomitant]
     Active Substance: NITROGLYCERIN
  5. RINEXIN [Concomitant]
     Active Substance: PHENYLPROPANOLAMINE
  6. ENALAPRIL [Concomitant]
     Active Substance: ENALAPRIL
  7. COMBIVENT [Concomitant]
     Active Substance: ALBUTEROL SULFATE\IPRATROPIUM BROMIDE
  8. ACETYLCYSTEINE. [Concomitant]
     Active Substance: ACETYLCYSTEINE
  9. FURIX [Concomitant]
     Active Substance: FUROSEMIDE
  10. TROMBYL [Concomitant]
     Active Substance: ASPIRIN
     Dates: start: 20161012
  11. BETAPRED [Concomitant]
     Active Substance: BETAMETHASONE SODIUM PHOSPHATE

REACTIONS (11)
  - Oedema peripheral [Unknown]
  - Constipation [Unknown]
  - Kidney fibrosis [Unknown]
  - Renal pain [Unknown]
  - Dyspnoea [Unknown]
  - Back pain [Unknown]
  - Urine output decreased [Unknown]
  - Nausea [Unknown]
  - Vomiting [Unknown]
  - Alopecia [Not Recovered/Not Resolved]
  - Myalgia [Unknown]

NARRATIVE: CASE EVENT DATE: 201610
